FAERS Safety Report 8268883-5 (Version None)
Quarter: 2012Q2

REPORT INFORMATION
  Report Type: 
  Country: None (occurrence: None)
  Receive Date: 20120409
  Receipt Date: 20120402
  Transmission Date: 20120825
  Serious: Yes (Other)
  Sender: FDA-Public Use
  Company Number: US-PFIZER INC-2012085346

PATIENT
  Sex: Female

DRUGS (1)
  1. NORGESTREL AND ETHINYL ESTRADIOL [Suspect]

REACTIONS (2)
  - COGNITIVE DISORDER [None]
  - EMOTIONAL DISORDER [None]
